FAERS Safety Report 4366823-2 (Version None)
Quarter: 2004Q2

REPORT INFORMATION
  Report Type: 
  Country: None (occurrence: None)
  Receive Date: 20040528
  Receipt Date: 20030318
  Transmission Date: 20050107
  Serious: Yes (Hospitalization)
  Sender: FDA-Public Use
  Company Number: US-BRISTOL-MYERS SQUIBB COMPANY-12214623

PATIENT
  Age: 43 Year
  Sex: Male
  Weight: 74 kg

DRUGS (9)
  1. CISPLATIN [Suspect]
     Indication: TERATOMA
     Dosage: DAYS 1 - 5
     Route: 041
     Dates: start: 20030205
  2. ETOPOSIDE [Suspect]
     Indication: TERATOMA
     Dosage: DAYS 1 - 5
     Route: 041
     Dates: start: 20030205
  3. IFOSFAMIDE [Suspect]
     Indication: TERATOMA
     Dosage: DAYS 1 - 5
     Route: 041
     Dates: start: 20030205
  4. MESNA [Suspect]
     Indication: TERATOMA
     Dosage: DAYS 1 - 5
     Route: 041
     Dates: start: 20030205
  5. CO-DYDRAMOL [Concomitant]
     Indication: PAIN
     Route: 048
     Dates: start: 20021201
  6. DICLOFENAC SODIUM [Concomitant]
     Indication: PAIN
     Route: 048
     Dates: start: 20021201, end: 20030201
  7. ALLOPURINOL [Concomitant]
     Indication: PROPHYLAXIS
     Route: 048
     Dates: start: 20020401, end: 20030201
  8. ALLOPURINOL [Concomitant]
     Indication: TUMOUR LYSIS SYNDROME
     Route: 048
     Dates: start: 20020401, end: 20030201
  9. FUROSEMIDE [Concomitant]
     Indication: OEDEMA
     Route: 048
     Dates: start: 20021201, end: 20030201

REACTIONS (6)
  - ANAEMIA [None]
  - EPISTAXIS [None]
  - FOLLICULITIS [None]
  - LEUKOPENIA [None]
  - NEUTROPENIC SEPSIS [None]
  - THROMBOCYTOPENIA [None]
